FAERS Safety Report 14304917 (Version 1)
Quarter: 2017Q4

REPORT INFORMATION
  Report Type: Spontaneous
  Country: JP (occurrence: JP)
  Receive Date: 20171219
  Receipt Date: 20171219
  Transmission Date: 20180321
  Serious: Yes (Life-Threatening)
  Sender: FDA-Public Use
  Company Number: JP-OTSUKA-03100-JPN-08-0023

PATIENT

DRUGS (5)
  1. LEXOTAN [Suspect]
     Active Substance: BROMAZEPAM
     Route: 048
  2. ROHYPNOL [Suspect]
     Active Substance: FLUNITRAZEPAM
     Route: 065
  3. FLUNITRAZEPAM [Suspect]
     Active Substance: FLUNITRAZEPAM
     Dosage: UNK
  4. TRYPTANOL [Suspect]
     Active Substance: AMITRIPTYLINE
     Route: 065
  5. ABILIFY [Suspect]
     Active Substance: ARIPIPRAZOLE
     Route: 048

REACTIONS (1)
  - Toxicity to various agents [Recovered/Resolved]

NARRATIVE: CASE EVENT DATE: 20080103
